FAERS Safety Report 4337722-7 (Version None)
Quarter: 2004Q2

REPORT INFORMATION
  Report Type: 
  Country: None (occurrence: None)
  Receive Date: 20040413
  Receipt Date: 20040402
  Transmission Date: 20050107
  Serious: Yes (Other)
  Sender: FDA-Public Use
  Company Number: US-ROCHE-363819

PATIENT
  Age: 44 Year
  Sex: Female

DRUGS (4)
  1. XELODA [Suspect]
     Route: 048
     Dates: start: 20040218
  2. XELODA [Suspect]
     Route: 048
     Dates: end: 20010615
  3. SIR-SPHERES [Interacting]
     Route: 050
     Dates: start: 20031015, end: 20031215
  4. TAXOTERE [Concomitant]
     Route: 048

REACTIONS (4)
  - ASCITES [None]
  - DRUG INTERACTION [None]
  - HEPATIC CIRRHOSIS [None]
  - PALMAR-PLANTAR ERYTHRODYSAESTHESIA SYNDROME [None]
